FAERS Safety Report 5069177-1 (Version None)
Quarter: 2006Q3

REPORT INFORMATION
  Report Type: 
  Country: None (occurrence: None)
  Receive Date: 20060717
  Receipt Date: 20060410
  Transmission Date: 20061208
  Serious: No
  Sender: FDA-Public Use
  Company Number: 2006000816

PATIENT
  Age: 78 Year
  Sex: Female

DRUGS (9)
  1. TARCEVA [Suspect]
     Indication: LUNG NEOPLASM MALIGNANT
     Dosage: SEE IMAGE
     Route: 048
  2. FLONASE (FLUTICASONE HYDROCHLORIDE) [Concomitant]
  3. ALBUTEROL [Concomitant]
  4. VERAPAMIL [Concomitant]
  5. DIGOXIN [Concomitant]
  6. BENAZEPRIL HYDROCHLORIDE [Concomitant]
  7. ASPIRIN [Concomitant]
  8. OXYGEN [Concomitant]
  9. PREDNISONE [Concomitant]

REACTIONS (7)
  - ACNE [None]
  - CYSTITIS [None]
  - HAIR GROWTH ABNORMAL [None]
  - NAIL GROWTH ABNORMAL [None]
  - RASH PUSTULAR [None]
  - SKIN FISSURES [None]
  - SPINAL COMPRESSION FRACTURE [None]
